FAERS Safety Report 9867925 (Version 2)
Quarter: 2014Q2

REPORT INFORMATION
  Report Type: Report from Study
  Country: AU (occurrence: AU)
  Receive Date: 20140204
  Receipt Date: 20140609
  Transmission Date: 20141212
  Serious: Yes (Death, Hospitalization)
  Sender: FDA-Public Use
  Company Number: AU-GLAXOSMITHKLINE-B0965683A

PATIENT
  Age: 67 Year
  Sex: Male

DRUGS (12)
  1. OFATUMUMAB [Suspect]
     Indication: CHRONIC LYMPHOCYTIC LEUKAEMIA
     Dosage: 1000MG WEEKLY
     Route: 042
     Dates: start: 20131029
  2. IDELALISIB [Suspect]
     Indication: CHRONIC LYMPHOCYTIC LEUKAEMIA
     Dosage: 150MG TWICE PER DAY
     Route: 048
     Dates: start: 20131029
  3. PERINDOPRIL [Concomitant]
     Dates: start: 2007
  4. ROSUVASTATIN [Concomitant]
     Dates: start: 2013
  5. CARVEDILOL [Concomitant]
     Dates: start: 2007
  6. FRUSEMIDE [Concomitant]
     Dates: start: 2009
  7. PANTOPRAZOLE [Concomitant]
  8. ALDACTONE [Concomitant]
     Dates: start: 2007
  9. ALLOPURINOL [Concomitant]
     Dates: start: 201212
  10. BACTRIM [Concomitant]
     Dates: start: 20131030
  11. VALTREX [Concomitant]
     Dates: start: 20131029
  12. ZOVIRAX [Concomitant]
     Dates: start: 20131028

REACTIONS (1)
  - Febrile neutropenia [Fatal]
